FAERS Safety Report 23951621 (Version 1)
Quarter: 2024Q2

REPORT INFORMATION
  Report Type: Spontaneous
  Country: US (occurrence: None)
  Receive Date: 20240607
  Receipt Date: 20240607
  Transmission Date: 20240716
  Serious: Yes (Other)
  Sender: FDA-Public Use
  Company Number: 2024A096362

PATIENT
  Age: 26273 Day
  Sex: Male

DRUGS (18)
  1. BYDUREON BCISE [Suspect]
     Active Substance: EXENATIDE
     Indication: Type 2 diabetes mellitus
     Route: 058
     Dates: start: 20230913
  2. ASPIRIN [Concomitant]
     Active Substance: ASPIRIN
     Route: 048
  3. ATORVASTATIN [Concomitant]
     Active Substance: ATORVASTATIN
     Route: 048
  4. ENALAPRIL MALEATE [Concomitant]
     Active Substance: ENALAPRIL MALEATE
     Route: 048
  5. METFORMIN [Concomitant]
     Active Substance: METFORMIN HYDROCHLORIDE
     Route: 048
  6. COVID-19 [Concomitant]
     Dosage: 30MCG/0.3ML
     Route: 030
     Dates: start: 20231024
  7. COVID-19 [Concomitant]
     Dosage: 30MCG/0.3ML
     Dates: start: 20210209
  8. COVID-19 [Concomitant]
     Dosage: 30MCG/0.3ML
     Dates: start: 20210226
  9. COVID-19 [Concomitant]
     Dosage: 30MCG/0.3ML
     Dates: start: 20210223
  10. COVID-19 [Concomitant]
     Dosage: 30MCG/0.3ML
     Route: 030
     Dates: start: 20210202
  11. COVID-19 [Concomitant]
     Dosage: 30MCG/0.3ML
     Route: 030
     Dates: start: 20210102
  12. INFLUENZA VIRUS VACCINE [Concomitant]
     Active Substance: INFLUENZA VIRUS VACCINE
     Route: 030
     Dates: start: 20231024
  13. INFLUENZA VIRUS VACCINE [Concomitant]
     Active Substance: INFLUENZA VIRUS VACCINE
     Dates: start: 20200202
  14. INFLUENZA VIRUS VACCINE [Concomitant]
     Active Substance: INFLUENZA VIRUS VACCINE
     Dates: start: 20181114
  15. INFLUENZA VIRUS VACCINE [Concomitant]
     Active Substance: INFLUENZA VIRUS VACCINE
     Route: 030
     Dates: start: 20180106
  16. INFLUENZA VIRUS VACCINE [Concomitant]
     Active Substance: INFLUENZA VIRUS VACCINE
     Dates: start: 20180101
  17. PNEUMOCOCCAL VACCINE POLYVALENT [Concomitant]
     Active Substance: PNEUMOCOCCAL VACCINE POLYVALENT
     Dates: start: 20190104
  18. PNEUMOCOCCAL VACCINE POLYVALENT [Concomitant]
     Active Substance: PNEUMOCOCCAL VACCINE POLYVALENT
     Dates: start: 20180504

REACTIONS (26)
  - Lumbar vertebral fracture [Unknown]
  - Atrial fibrillation [Unknown]
  - Glycosylated haemoglobin increased [Unknown]
  - Blood glucose increased [Unknown]
  - Albumin urine [Unknown]
  - Blood creatinine increased [Unknown]
  - Vitamin B12 increased [Unknown]
  - Pain in extremity [Unknown]
  - Cardiac ablation [Unknown]
  - Fall [Unknown]
  - Arthritis [Unknown]
  - Blood pressure abnormal [Unknown]
  - Dizziness [Unknown]
  - Femoral nerve injury [Unknown]
  - Rotator cuff syndrome [Not Recovered/Not Resolved]
  - Hypoacusis [Unknown]
  - Myalgia [Unknown]
  - Asthenia [Unknown]
  - Arthralgia [Unknown]
  - Back pain [Unknown]
  - Tanning [Unknown]
  - Nail deformation [Unknown]
  - Nail discolouration [Unknown]
  - Device leakage [Unknown]
  - Device malfunction [Unknown]
  - Wrong technique in device usage process [Unknown]

NARRATIVE: CASE EVENT DATE: 20240403
